FAERS Safety Report 5143888-1 (Version None)
Quarter: 2006Q4

REPORT INFORMATION
  Report Type: 
  Country: None (occurrence: None)
  Receive Date: 20061106
  Receipt Date: 20061026
  Transmission Date: 20070319
  Serious: Yes (Other)
  Sender: FDA-Public Use
  Company Number: US-JNJFOC-20061006369

PATIENT
  Sex: Female
  Weight: 53.52 kg

DRUGS (4)
  1. INFLIXIMAB [Suspect]
     Indication: RHEUMATOID ARTHRITIS
     Route: 042
     Dates: start: 19971030
  2. METHOTREXATE [Concomitant]
     Dosage: DOSAGE 10-12.5 MG WEEKLY
  3. FOLIC ACID [Concomitant]
  4. CELEBREX [Concomitant]

REACTIONS (1)
  - BASAL CELL CARCINOMA [None]
